FAERS Safety Report 4306977-7 (Version None)
Quarter: 2004Q1

REPORT INFORMATION
  Report Type: 
  Country: None (occurrence: None)
  Receive Date: 20040225
  Receipt Date: 20040220
  Transmission Date: 20041129
  Serious: Yes (Life-Threatening, Hospitalization)
  Sender: FDA-Public Use
  Company Number: STA-AE-04-MTX-012

PATIENT
  Age: 84 Year
  Sex: Female

DRUGS (14)
  1. RHEUMATREX [Suspect]
     Indication: RHEUMATOID ARTHRITIS
     Dosage: 2 MG 1X PER 1 WK, ORAL
     Route: 048
     Dates: start: 20030801, end: 20031229
  2. PREDNISOLONE [Concomitant]
  3. VOLTAREN [Concomitant]
  4. LOXONIN (LOXOPROFEN SODIUM) [Concomitant]
  5. MARZULENE S (LEVOGLUTAMIDE/SODIUM GUALENATE) [Concomitant]
  6. MECOBALAMIN (MECOBALAMIN) [Concomitant]
  7. ONE-ALPHA (ALFACALCIDOL) [Concomitant]
  8. ORCL (ACTARIT) [Concomitant]
  9. SEVEN EP (ENZYMES NOS) [Concomitant]
  10. KEISIKAJUTUBUTO (HERBAL EXTRACTS NOS) [Concomitant]
  11. MENATETRENONE (MENATETRENONE) [Concomitant]
  12. HALCION [Concomitant]
  13. LANIRAPID (METILDIGOXIN) [Concomitant]
  14. FAMOTIDINE [Concomitant]

REACTIONS (11)
  - ANOREXIA [None]
  - BLOOD LACTATE DEHYDROGENASE INCREASED [None]
  - BLOOD UREA INCREASED [None]
  - DYSPNOEA [None]
  - HYPOXIA [None]
  - INTERSTITIAL LUNG DISEASE [None]
  - LUNG INFECTION [None]
  - NAUSEA [None]
  - OEDEMA PERIPHERAL [None]
  - PLEURAL EFFUSION [None]
  - URINARY TRACT INFECTION [None]
